FAERS Safety Report 8396649-4 (Version None)
Quarter: 2012Q2

REPORT INFORMATION
  Report Type: 
  Country: None (occurrence: None)
  Receive Date: 20120530
  Receipt Date: 20120515
  Transmission Date: 20120825
  Serious: No
  Sender: FDA-Public Use
  Company Number: US-ASTRAZENECA-2012SE30538

PATIENT
  Age: 61 Year
  Sex: Female

DRUGS (3)
  1. NEXIUM [Suspect]
     Route: 048
  2. PRILOSEC [Suspect]
     Route: 048
  3. PRILOSEC [Suspect]
     Dosage: GENERIC
     Route: 048

REACTIONS (12)
  - DRUG INEFFECTIVE [None]
  - BLOOD GLUCOSE INCREASED [None]
  - INSOMNIA [None]
  - URTICARIA [None]
  - CHOKING [None]
  - BACK PAIN [None]
  - PRURITUS [None]
  - MALAISE [None]
  - GASTROOESOPHAGEAL REFLUX DISEASE [None]
  - DYSPEPSIA [None]
  - INTENTIONAL DRUG MISUSE [None]
  - DIABETES MELLITUS [None]
